FAERS Safety Report 8169432-2 (Version None)
Quarter: 2012Q1

REPORT INFORMATION
  Report Type: 
  Country: None (occurrence: None)
  Receive Date: 20120222
  Receipt Date: 20120216
  Transmission Date: 20120608
  Serious: Yes (Hospitalization, Disabling, Other)
  Sender: FDA-Public Use
  Company Number: GER/UKI/12/0023042

PATIENT
  Age: 76 Year
  Sex: Male
  Weight: 80 kg

DRUGS (4)
  1. CIPROFLOXACIN [Suspect]
     Indication: CHOLANGITIS
     Dosage: 250 MG, 2 IN 1 D, ORAL
     Route: 048
     Dates: start: 20111001, end: 20111101
  2. ENOXAPARIN SODIUM [Concomitant]
  3. LEVETIRACETAM [Concomitant]
  4. VALPROATE SODIUM [Concomitant]

REACTIONS (3)
  - TENDONITIS [None]
  - OEDEMA PERIPHERAL [None]
  - ERYTHEMA [None]
